FAERS Safety Report 7279920 (Version 8)
Quarter: 2012Q4

REPORT INFORMATION
  Report Type: 
  Country: CA (occurrence: CA)
  Receive Date: 20100216
  Receipt Date: 20121101
  Transmission Date: 20130627
  Serious: Yes (Other)
  Sender: FDA-Public Use
  Company Number: PHHY2009CA22421

PATIENT
  Sex: Female

DRUGS (2)
  1. ZOMETA [Suspect]
     Indication: BREAST CANCER
     Dosage: 4 mg, QMO
     Route: 042
     Dates: start: 20080702, end: 20120106
  2. ZOMETA [Suspect]
     Dosage: 4 mg, every 4 weeks
     Route: 042
     Dates: end: 20120106

REACTIONS (23)
  - Blood chloride decreased [Unknown]
  - Neutrophil count decreased [Unknown]
  - Blood alkaline phosphatase increased [Unknown]
  - Aspartate aminotransferase increased [Unknown]
  - Alanine aminotransferase increased [Unknown]
  - Monocyte count increased [Unknown]
  - Mean cell volume increased [Unknown]
  - Haematocrit decreased [Unknown]
  - Red cell distribution width increased [Unknown]
  - Blood chloride increased [Unknown]
  - Neutrophil count increased [Unknown]
  - Mean cell haemoglobin concentration increased [Unknown]
  - Tooth infection [Unknown]
  - Bone pain [Unknown]
  - Nausea [Unknown]
  - Confusional state [Unknown]
  - Haemoglobin decreased [Unknown]
  - Red blood cell count decreased [Unknown]
  - White blood cell count decreased [Unknown]
  - Blood magnesium decreased [Unknown]
  - Blood phosphorus decreased [Unknown]
  - Platelet count decreased [Unknown]
  - Blood calcium decreased [Unknown]
